FAERS Safety Report 6395410-X (Version None)
Quarter: 2009Q4

REPORT INFORMATION
  Report Type: 
  Country: None (occurrence: None)
  Receive Date: 20091009
  Receipt Date: 20091005
  Transmission Date: 20100525
  Serious: Yes (Hospitalization)
  Sender: FDA-Public Use
  Company Number: FR-TEVA-211470ISR

PATIENT
  Sex: Male

DRUGS (10)
  1. COPAXONE [Suspect]
     Indication: MULTIPLE SCLEROSIS
     Route: 058
     Dates: start: 20080519
  2. COPAXONE [Suspect]
     Route: 058
     Dates: start: 20080605, end: 20080608
  3. ACETYLSALICYLIC ACID [Concomitant]
  4. FLECAINIDE ACETATE [Concomitant]
  5. ACEBUTOLOL [Concomitant]
  6. CANDESARTAN CILEXETIL [Concomitant]
  7. FLUINDIONE [Concomitant]
  8. HYDROXYZINE [Concomitant]
  9. CLONAZEPAM [Concomitant]
  10. DANTROLENE SODIUM [Concomitant]

REACTIONS (1)
  - HYPERTHERMIA [None]
